FAERS Safety Report 9199965 (Version 2)
Quarter: 2013Q2

REPORT INFORMATION
  Report Type: Spontaneous
  Country: IT (occurrence: IT)
  Receive Date: 20130329
  Receipt Date: 20130409
  Transmission Date: 20140414
  Serious: Yes (Other)
  Sender: FDA-Public Use
  Company Number: IT-PFIZER INC-2013101278

PATIENT
  Age: 85 Year
  Sex: Female

DRUGS (6)
  1. MEDROL [Suspect]
     Indication: BRONCHITIS
     Dosage: 1 DF, 1X/DAY
     Route: 048
     Dates: start: 20130111, end: 20130114
  2. LEVOFLOXACIN [Suspect]
     Indication: BRONCHITIS
     Dosage: 1 DF, 1X/DAY
     Route: 048
     Dates: start: 20130111, end: 20130114
  3. FLECAINIDE [Concomitant]
     Dosage: UNK
     Route: 048
  4. PANTOPAN [Concomitant]
     Dosage: UNK
     Route: 048
  5. MICARDIS [Concomitant]
     Dosage: UNK
     Route: 048
  6. CARDIRENE [Concomitant]
     Dosage: UNK
     Route: 048

REACTIONS (3)
  - Syncope [Recovering/Resolving]
  - Malaise [Recovering/Resolving]
  - Vomiting [Recovering/Resolving]
